FAERS Safety Report 8905330 (Version 2)
Quarter: 2012Q4

REPORT INFORMATION
  Report Type: 
  Country: QA (occurrence: QA)
  Receive Date: 20121113
  Receipt Date: 20121121
  Transmission Date: 20130627
  Serious: Yes (Death, Hospitalization)
  Sender: FDA-Public Use
  Company Number: QA-RANBAXY-2012RR-61849

PATIENT
  Age: 60 Year
  Sex: Female

DRUGS (9)
  1. ATORVASTATIN [Suspect]
     Indication: HYPERLIPIDAEMIA
     Dosage: 20 mg, daily
     Route: 065
  2. OMEPRAZOLE [Interacting]
     Indication: PROPHYLAXIS AGAINST GASTROINTESTINAL ULCER
     Dosage: 20 mg, daily
     Route: 065
  3. DEXAMETHASONE [Interacting]
     Indication: SPINAL CORD COMPRESSION
     Dosage: 8 mg, bid
     Route: 065
  4. DEXAMETHASONE [Interacting]
     Indication: SPINAL CORD COMPRESSION
     Dosage: 6 mg, bid
     Route: 065
  5. CALCIUM CARBONATE [Concomitant]
     Indication: PRODUCT USED FOR UNKNOWN INDICATION
     Dosage: UNK
     Route: 065
  6. TRAMADOL [Concomitant]
     Indication: CANCER PAIN
     Dosage: UNK
     Route: 065
  7. CELECOXIB [Concomitant]
     Indication: BONE PAIN
     Dosage: UNK
     Route: 065
  8. GABAPENTIN [Concomitant]
     Indication: NEURALGIA
     Dosage: UNK
     Route: 065
  9. BISACODYL [Concomitant]
     Indication: CONSTIPATION
     Dosage: UNK
     Route: 065

REACTIONS (2)
  - Rhabdomyolysis [Unknown]
  - Drug interaction [Unknown]
